FAERS Safety Report 10149203 (Version 1)
Quarter: 2014Q2

REPORT INFORMATION
  Report Type: Spontaneous
  Country: US (occurrence: US)
  Receive Date: 20140502
  Receipt Date: 20140502
  Transmission Date: 20141212
  Serious: No
  Sender: FDA-Public Use
  Company Number: US-TARO-2013P1021075

PATIENT
  Age: 28 Year
  Sex: Male

DRUGS (1)
  1. CARBAMAZEPINE EXTENDED RELEASE TABLETS USP 400MG [Suspect]
     Route: 048
     Dates: start: 20131103, end: 20131113

REACTIONS (4)
  - Feeling drunk [Unknown]
  - Fatigue [Unknown]
  - Mydriasis [Unknown]
  - Drug effect increased [Unknown]
